FAERS Safety Report 8621649-6 (Version None)
Quarter: 2012Q3

REPORT INFORMATION
  Report Type: 
  Country: None (occurrence: None)
  Receive Date: 20120820
  Receipt Date: 20120820
  Transmission Date: 20120928
  Serious: Yes (Death)
  Sender: FDA-Public Use
  Company Number: None

PATIENT
  Age: 71 Year
  Sex: Male

DRUGS (2)
  1. AVASTIN [Suspect]
     Indication: MACULAR OEDEMA
     Dosage: 1, 6 WEEKS, INTRAOCULAR
     Route: 031
     Dates: start: 20091110, end: 20110609
  2. LUCENTIS [Suspect]
     Indication: RETINAL VEIN OCCLUSION
     Dosage: 1, 4 WEEKS, INTRAOCULAR
     Route: 031
     Dates: start: 20110706, end: 20120801

REACTIONS (1)
  - DEATH [None]
